FAERS Safety Report 9355502 (Version 1)
Quarter: 2013Q2

REPORT INFORMATION
  Report Type: Spontaneous
  Country: TN (occurrence: TN)
  Receive Date: 20130619
  Receipt Date: 20130619
  Transmission Date: 20140414
  Serious: Yes (Hospitalization, Other)
  Sender: FDA-Public Use
  Company Number: TN-BAYER-2013-072372

PATIENT
  Age: 30 Year
  Sex: Female

DRUGS (1)
  1. BETAFERON [Suspect]
     Indication: MULTIPLE SCLEROSIS
     Dosage: 8 IU, QOD
     Route: 058
     Dates: start: 20130507

REACTIONS (3)
  - Pain in extremity [Unknown]
  - Gait disturbance [Unknown]
  - Paraesthesia [None]
